FAERS Safety Report 20163097 (Version 1)
Quarter: 2021Q4

REPORT INFORMATION
  Report Type: Spontaneous
  Country: JP (occurrence: JP)
  Receive Date: 20211209
  Receipt Date: 20211209
  Transmission Date: 20220303
  Serious: Yes (Other)
  Sender: FDA-Public Use
  Company Number: JP-TAKEDA-2021TEU009761

PATIENT
  Age: 75 Year
  Sex: Male

DRUGS (1)
  1. MIDODRINE HYDROCHLORIDE [Suspect]
     Active Substance: MIDODRINE HYDROCHLORIDE
     Indication: Hypotension
     Dosage: 2 MILLIGRAM, BID
     Route: 048

REACTIONS (3)
  - Skin ulcer [Unknown]
  - Ulcer [Unknown]
  - Skin ulcer [Unknown]

NARRATIVE: CASE EVENT DATE: 20211115
